FAERS Safety Report 9997559 (Version 2)
Quarter: 2014Q1

REPORT INFORMATION
  Report Type: Report from Study
  Country: CA (occurrence: CA)
  Receive Date: 20140311
  Receipt Date: 20140311
  Transmission Date: 20141002
  Serious: Yes (Other)
  Sender: FDA-Public Use
  Company Number: CA-PFIZER INC-2014048201

PATIENT
  Age: 54 Year
  Sex: Female

DRUGS (3)
  1. RAMIPRIL [Suspect]
     Dosage: 5 MG, UNK
     Route: 048
  2. AUBAGIO [Suspect]
     Indication: RELAPSING-REMITTING MULTIPLE SCLEROSIS
     Dosage: 14 MG, UNK
     Route: 048
     Dates: start: 20140121
  3. SYNTHROID [Concomitant]
     Dosage: 0.125 MG, UNK
     Route: 048

REACTIONS (2)
  - Tooth abscess [Not Recovered/Not Resolved]
  - Nausea [Recovered/Resolved]
